FAERS Safety Report 6035798-2 (Version None)
Quarter: 2009Q1

REPORT INFORMATION
  Report Type: 
  Country: None (occurrence: None)
  Receive Date: 20090109
  Receipt Date: 20081223
  Transmission Date: 20090719
  Serious: Yes (Death)
  Sender: FDA-Public Use
  Company Number: 000050

PATIENT
  Age: 53 Year
  Sex: Female

DRUGS (6)
  1. NIFEDIPINE [Suspect]
  2. CYCLOBENZAPRINE HCL [Suspect]
  3. ACETAMINOPHEN [Suspect]
  4. BUPROPION HCL [Suspect]
  5. ETHANOL [Suspect]
  6. PIROXICAM [Suspect]

REACTIONS (1)
  - COMPLETED SUICIDE [None]
